FAERS Safety Report 9028647 (Version 1)
Quarter: 2013Q1

REPORT INFORMATION
  Report Type: Report from Study
  Country: GB (occurrence: GB)
  Receive Date: 20130124
  Receipt Date: 20130124
  Transmission Date: 20140127
  Serious: Yes (Hospitalization, Other)
  Sender: FDA-Public Use
  Company Number: GB-UCBSA-076266

PATIENT
  Age: 67 Year
  Sex: Female
  Weight: 49.1 kg

DRUGS (6)
  1. CIMZIA [Suspect]
     Indication: RHEUMATOID ARTHRITIS
     Route: 058
     Dates: start: 20110121, end: 20110311
  2. THYROXIN [Concomitant]
     Dates: start: 20071201
  3. ADCAL-D3 [Concomitant]
     Dates: start: 20110201
  4. CO-CODAMOL [Concomitant]
     Dosage: DAILY DOSE: 30/500 MGS PRN
     Dates: start: 20081201
  5. PARACETAMOL [Concomitant]
     Dosage: 1 G, 1 IN 1 AS REQUIRED
     Dates: start: 20091101
  6. DICLOFENAC [Concomitant]
     Dates: start: 20091201

REACTIONS (2)
  - Pneumonia [Unknown]
  - Swelling face [Recovered/Resolved]
